FAERS Safety Report 4416144-4 (Version None)
Quarter: 2004Q3

REPORT INFORMATION
  Report Type: 
  Country: None (occurrence: None)
  Receive Date: 20040805
  Receipt Date: 20040726
  Transmission Date: 20050211
  Serious: Yes (Hospitalization)
  Sender: FDA-Public Use
  Company Number: 200412460JP

PATIENT
  Age: 65 Year
  Sex: Female

DRUGS (10)
  1. ARAVA [Suspect]
     Indication: RHEUMATOID ARTHRITIS
     Route: 048
     Dates: start: 20031218, end: 20040414
  2. RINDERON [Concomitant]
     Indication: SYSTEMIC SCLEROSIS
     Route: 048
  3. NU-LOTAN [Concomitant]
     Indication: HYPERTENSION
     Route: 048
  4. VOLTAREN [Concomitant]
     Indication: RHEUMATOID ARTHRITIS
     Route: 054
  5. BONALON [Concomitant]
     Indication: OSTEOPOROSIS
     Route: 048
  6. LOXONIN [Concomitant]
     Indication: RHEUMATOID ARTHRITIS
     Route: 048
     Dates: end: 20040204
  7. CLINORIL [Concomitant]
     Indication: RHEUMATOID ARTHRITIS
     Route: 048
     Dates: start: 20040205
  8. ATELEC [Concomitant]
     Indication: HYPERTENSION
     Route: 048
  9. FOLIAMIN [Concomitant]
     Indication: ANAEMIA
     Route: 048
  10. TAGAMET [Concomitant]
     Route: 048
     Dates: start: 20040107

REACTIONS (1)
  - HOSPITALISATION [None]
